FAERS Safety Report 21227790 (Version 1)
Quarter: 2022Q3

REPORT INFORMATION
  Report Type: Spontaneous
  Country: FR (occurrence: FR)
  Receive Date: 20220818
  Receipt Date: 20220818
  Transmission Date: 20221027
  Serious: Yes (Other)
  Sender: FDA-Public Use
  Company Number: FR-Zentiva-2022-ZT-005690

PATIENT
  Age: 62 Year
  Sex: Female

DRUGS (4)
  1. CIMETIDINE [Suspect]
     Active Substance: CIMETIDINE
     Indication: Prophylaxis against gastrointestinal ulcer
     Dosage: UNK
     Route: 065
  2. RACECADOTRIL [Suspect]
     Active Substance: RACECADOTRIL
     Indication: Diarrhoea
     Dosage: UNK
     Route: 065
  3. ENOXAPARIN [Concomitant]
     Active Substance: ENOXAPARIN
     Dosage: UNK
     Route: 065
  4. ACETAZOLAMIDE [Concomitant]
     Active Substance: ACETAZOLAMIDE
     Dosage: UNK
     Route: 065

REACTIONS (7)
  - Drug reaction with eosinophilia and systemic symptoms [Recovered/Resolved]
  - Face oedema [Recovered/Resolved]
  - Eosinophil count increased [Recovered/Resolved]
  - Severe cutaneous adverse reaction [Recovered/Resolved]
  - Drug hypersensitivity [Recovered/Resolved]
  - Rash [Recovered/Resolved]
  - Pyrexia [Recovered/Resolved]
